FAERS Safety Report 13803639 (Version 1)
Quarter: 2017Q3

REPORT INFORMATION
  Report Type: Spontaneous
  Country: US (occurrence: US)
  Receive Date: 20170728
  Receipt Date: 20170728
  Transmission Date: 20171127
  Serious: No
  Sender: FDA-Public Use
  Company Number: US-ENDO PHARMACEUTICALS INC-2016-005279

PATIENT
  Sex: Male
  Weight: 69.01 kg

DRUGS (1)
  1. STRIANT [Suspect]
     Active Substance: TESTOSTERONE
     Indication: BLOOD TESTOSTERONE DECREASED
     Route: 002
     Dates: start: 20150306

REACTIONS (3)
  - Product quality issue [Unknown]
  - Blood testosterone decreased [Unknown]
  - Incorrect route of drug administration [Unknown]

NARRATIVE: CASE EVENT DATE: 2016
